FAERS Safety Report 23825930 (Version 1)
Quarter: 2024Q2

REPORT INFORMATION
  Report Type: Spontaneous
  Country: FR (occurrence: FR)
  Receive Date: 20240507
  Receipt Date: 20240507
  Transmission Date: 20240716
  Serious: Yes (Hospitalization, Other)
  Sender: FDA-Public Use
  Company Number: None

PATIENT
  Age: 83 Year
  Sex: Female
  Weight: 56 kg

DRUGS (15)
  1. HEPARIN CALCIUM [Suspect]
     Active Substance: HEPARIN CALCIUM
     Indication: Atrial fibrillation
     Dosage: 30000 IU, QD
     Route: 048
     Dates: start: 20240315, end: 20240323
  2. HEPARIN CALCIUM [Suspect]
     Active Substance: HEPARIN CALCIUM
     Dosage: 5000 IU, QD
     Route: 058
     Dates: start: 20240315
  3. HEPARIN CALCIUM [Suspect]
     Active Substance: HEPARIN CALCIUM
     Dosage: 15000 IU, QD
     Route: 058
     Dates: start: 20240318
  4. HEPARIN CALCIUM [Suspect]
     Active Substance: HEPARIN CALCIUM
     Dosage: 500 IU, QD
     Route: 058
     Dates: start: 20240326
  5. COUMADIN [Suspect]
     Active Substance: WARFARIN SODIUM
     Indication: Atrial fibrillation
     Dosage: 4 MG, QD
     Route: 048
     Dates: start: 20240318, end: 20240323
  6. COUMADIN [Suspect]
     Active Substance: WARFARIN SODIUM
     Dosage: 4 MG, QD
     Route: 048
     Dates: start: 20240318
  7. COUMADIN [Suspect]
     Active Substance: WARFARIN SODIUM
     Dosage: 4 MG, QD
     Route: 048
     Dates: start: 20240331
  8. LOVENOX [Suspect]
     Active Substance: ENOXAPARIN SODIUM
     Indication: Thrombosis prophylaxis
     Dosage: 2000 IU
     Dates: start: 20240315, end: 20240322
  9. BISOPROLOL [Suspect]
     Active Substance: BISOPROLOL\BISOPROLOL FUMARATE
     Dosage: UNK
  10. IRBESARTAN [Suspect]
     Active Substance: IRBESARTAN
     Dosage: UNK
  11. AMLODIPINE [Suspect]
     Active Substance: AMLODIPINE BESYLATE
     Dosage: UNK
  12. FUROSEMIDE [Suspect]
     Active Substance: FUROSEMIDE
     Dosage: UNK
  13. LEVOTHYROXINE SODIUM [Suspect]
     Active Substance: LEVOTHYROXINE SODIUM
     Dosage: UNK
  14. CALCIUM CARBONATE [Suspect]
     Active Substance: CALCIUM CARBONATE
     Dosage: UNK
  15. RENVELA [Suspect]
     Active Substance: SEVELAMER CARBONATE
     Dosage: UNK

REACTIONS (4)
  - Blood loss anaemia [Recovering/Resolving]
  - Melaena [Recovered/Resolved]
  - Peptic ulcer [Unknown]
  - Overdose [Recovered/Resolved]

NARRATIVE: CASE EVENT DATE: 20240323
